FAERS Safety Report 20075136 (Version 2)
Quarter: 2022Q1

REPORT INFORMATION
  Report Type: Spontaneous
  Country: US (occurrence: US)
  Receive Date: 20211116
  Receipt Date: 20220121
  Transmission Date: 20220423
  Serious: No
  Sender: FDA-Public Use
  Company Number: US-SANOFI-00850215

PATIENT
  Age: 38 Year
  Sex: Male

DRUGS (1)
  1. ADMELOG [Suspect]
     Active Substance: INSULIN LISPRO
     Indication: Type 1 diabetes mellitus
     Dosage: 15 IU, Q8H
     Route: 065

REACTIONS (5)
  - Pain [Unknown]
  - COVID-19 [Unknown]
  - Blood glucose increased [Unknown]
  - Device leakage [Unknown]
  - Wrong technique in product usage process [Unknown]
